FAERS Safety Report 11528889 (Version 1)
Quarter: 2015Q3

REPORT INFORMATION
  Report Type: Spontaneous
  Country: US (occurrence: None)
  Receive Date: 20150918
  Receipt Date: 20150918
  Transmission Date: 20151125
  Serious: No
  Sender: FDA-Public Use
  Company Number: None

PATIENT
  Age: 50 Year
  Sex: Female
  Weight: 58.97 kg

DRUGS (2)
  1. CLARITIN-D 12 HOUR [Suspect]
     Active Substance: LORATADINE\PSEUDOEPHEDRINE SULFATE
     Indication: MULTIPLE ALLERGIES
     Dates: start: 20150912, end: 20150915
  2. SINGULAR (MONTELUKAST) [Concomitant]

REACTIONS (3)
  - Syncope [None]
  - Decreased appetite [None]
  - Feeling jittery [None]

NARRATIVE: CASE EVENT DATE: 20150915
